FAERS Safety Report 5510045-6 (Version None)
Quarter: 2007Q4

REPORT INFORMATION
  Report Type: 
  Country: None (occurrence: None)
  Receive Date: 20071108
  Receipt Date: 20070723
  Transmission Date: 20080405
  Serious: No
  Sender: FDA-Public Use
  Company Number: US-ABBOTT-07P-163-0375602-00

PATIENT
  Sex: Female
  Weight: 68.1 kg

DRUGS (5)
  1. BIAXIN FILMTABS [Suspect]
     Indication: HELICOBACTER INFECTION
     Route: 048
     Dates: start: 20070710, end: 20070723
  2. LANSOPRAZOLE [Suspect]
     Indication: HELICOBACTER INFECTION
     Route: 048
     Dates: start: 20070710
  3. AMOXICILLIN [Suspect]
     Indication: HELICOBACTER INFECTION
     Route: 048
     Dates: start: 20070710
  4. LISINOPRIL [Concomitant]
     Indication: HYPERTENSION
     Route: 048
  5. METOPROLOL SUCCINATE [Concomitant]
     Indication: HYPERTENSION
     Route: 048

REACTIONS (4)
  - DRY MOUTH [None]
  - DYSGEUSIA [None]
  - TOOTH DISCOLOURATION [None]
  - TOOTH DISORDER [None]
